FAERS Safety Report 23027990 (Version 1)
Quarter: 2023Q4

REPORT INFORMATION
  Report Type: Spontaneous
  Country: CA (occurrence: CA)
  Receive Date: 20231004
  Receipt Date: 20231004
  Transmission Date: 20240110
  Serious: Yes (Other)
  Sender: FDA-Public Use
  Company Number: CA-002147023-NVSC2021CA183632

PATIENT
  Sex: Female

DRUGS (2)
  1. HYRIMOZ [Suspect]
     Active Substance: ADALIMUMAB-ADAZ
     Indication: Crohn^s disease
     Dosage: 40 MG
     Route: 058
     Dates: start: 20210531
  2. HYRIMOZ [Suspect]
     Active Substance: ADALIMUMAB-ADAZ
     Dosage: 40 MG
     Route: 058

REACTIONS (3)
  - Haemorrhage [Not Recovered/Not Resolved]
  - Haematochezia [Not Recovered/Not Resolved]
  - Treatment failure [Not Recovered/Not Resolved]
